FAERS Safety Report 9680797 (Version 2)
Quarter: 2013Q4

REPORT INFORMATION
  Report Type: Spontaneous
  Country: AU (occurrence: AU)
  Receive Date: 20131111
  Receipt Date: 20131113
  Transmission Date: 20140711
  Serious: Yes (Other)
  Sender: FDA-Public Use
  Company Number: PHHY2013AU126936

PATIENT
  Age: 20 Year
  Sex: Male

DRUGS (2)
  1. RITALIN LA [Suspect]
     Dosage: UNK UKN, UNK
  2. MINOMYCIN [Suspect]
     Dosage: UNK UKN, UNK

REACTIONS (5)
  - Haematochezia [Unknown]
  - Occult blood [Unknown]
  - Haemorrhage [Unknown]
  - Iron deficiency anaemia [Unknown]
  - Haemoglobin decreased [Unknown]
